FAERS Safety Report 15343171 (Version 5)
Quarter: 2019Q1

REPORT INFORMATION
  Report Type: Spontaneous
  Country: FR (occurrence: FR)
  Receive Date: 20180903
  Receipt Date: 20190305
  Transmission Date: 20190417
  Serious: Yes (Death, Other)
  Sender: FDA-Public Use
  Company Number: FR-AUROBINDO-AUR-APL-2018-043756

PATIENT

DRUGS (10)
  1. PAXIL [Suspect]
     Active Substance: PAROXETINE HYDROCHLORIDE
     Indication: PRODUCT USED FOR UNKNOWN INDICATION
     Dosage: UNK
     Route: 065
  2. MEPRONIZINE [Suspect]
     Active Substance: ACEPROMETAZINE MALEATE\MEPROBAMATE
     Indication: PRODUCT USED FOR UNKNOWN INDICATION
     Dosage: 2 DOSAGE FORM, ONCE A DAY, TWO TABLETS/DAY
     Route: 065
  3. DEPAKENE [Suspect]
     Active Substance: VALPROIC ACID
     Dosage: 500 MILLIGRAM, THREE TABLETS/DAY
     Route: 065
  4. SUBUTEX [Suspect]
     Active Substance: BUPRENORPHINE HYDROCHLORIDE
     Dosage: 6MG PER DAY (INTERRUPTED)
     Route: 065
  5. PHENERGAN [Suspect]
     Active Substance: PROMETHAZINE HYDROCHLORIDE
     Indication: PRODUCT USED FOR UNKNOWN INDICATION
     Dosage: 25 MG TWO TABLETS/DAY
     Route: 065
  6. DEPAKENE [Suspect]
     Active Substance: VALPROIC ACID
     Indication: PRODUCT USED FOR UNKNOWN INDICATION
     Dosage: 3 DOSAGE FORM, ONCE A DAY
     Route: 065
  7. SUBUTEX [Suspect]
     Active Substance: BUPRENORPHINE HYDROCHLORIDE
     Indication: PRODUCT USED FOR UNKNOWN INDICATION
     Dosage: 8 MILLIGRAM, ONCE A DAY
     Route: 065
  8. SUBUTEX [Suspect]
     Active Substance: BUPRENORPHINE HYDROCHLORIDE
     Dosage: 6MG, PER DAY (RE-INITIATED)
     Route: 065
  9. HYDROXYZINE [Suspect]
     Active Substance: HYDROXYZINE HYDROCHLORIDE
     Indication: ANXIETY
     Dosage: 100 MILLIGRAM, 3 TIMES A DAY (THREE TABLETS/DAY)
     Route: 065
  10. BROMAZEPAM TABLET [Suspect]
     Active Substance: BROMAZEPAM
     Indication: PRODUCT USED FOR UNKNOWN INDICATION
     Dosage: 3 DOSAGE FORM, ONCE A DAY (THREE TABLETS/DAY )
     Route: 065

REACTIONS (18)
  - Asphyxia [Fatal]
  - Lymphadenopathy mediastinal [Fatal]
  - Intentional overdose [Fatal]
  - Toxicity to various agents [Fatal]
  - Substance dependence [Unknown]
  - Completed suicide [Fatal]
  - Lymphadenopathy [Fatal]
  - Condition aggravated [Unknown]
  - Altered state of consciousness [Fatal]
  - Therapy cessation [Recovered/Resolved]
  - Ovarian cyst [Fatal]
  - Overdose [Fatal]
  - Drug screen positive [Recovered/Resolved]
  - Drug abuse [Unknown]
  - Respiratory depression [Fatal]
  - Suicidal ideation [Fatal]
  - Intentional self-injury [Unknown]
  - Pelvic pain [Unknown]
